FAERS Safety Report 23700369 (Version 4)
Quarter: 2024Q4

REPORT INFORMATION
  Report Type: Report from Study
  Country: US (occurrence: US)
  Receive Date: 20240403
  Receipt Date: 20241007
  Transmission Date: 20250115
  Serious: Yes (Other)
  Sender: ABBVIE
  Company Number: US-ABBVIE-5621377

PATIENT
  Age: 81 Year
  Sex: Female

DRUGS (2)
  1. RINVOQ [Suspect]
     Active Substance: UPADACITINIB
     Indication: Crohn^s disease
     Dosage: LAST ADMIN DATE: JUN 2023
     Route: 048
     Dates: start: 20230620
  2. RINVOQ [Suspect]
     Active Substance: UPADACITINIB
     Indication: Crohn^s disease
     Route: 048

REACTIONS (12)
  - Intestinal obstruction [Unknown]
  - Crohn^s disease [Not Recovered/Not Resolved]
  - Dizziness [Recovered/Resolved]
  - Blood iron decreased [Unknown]
  - Vertigo [Recovered/Resolved]
  - Wound haemorrhage [Unknown]
  - Left atrial appendage closure implant [Unknown]
  - Head injury [Unknown]
  - Tick-borne fever [Unknown]
  - Night sweats [Unknown]
  - Chills [Unknown]
  - Asthenia [Recovering/Resolving]

NARRATIVE: CASE EVENT DATE: 20240127
